FAERS Safety Report 22914542 (Version 4)
Quarter: 2024Q4

REPORT INFORMATION
  Report Type: Report from Study
  Country: ES (occurrence: ES)
  Receive Date: 20230907
  Receipt Date: 20241031
  Transmission Date: 20250114
  Serious: Yes (Hospitalization, Other)
  Sender: ABBVIE
  Company Number: ES-JNJFOC-20230863851

PATIENT
  Age: 89 Year
  Sex: Female
  Weight: 44 kg

DRUGS (1)
  1. IBRUTINIB [Suspect]
     Active Substance: IBRUTINIB
     Indication: Chronic lymphocytic leukaemia
     Route: 048
     Dates: start: 20230809, end: 20230824

REACTIONS (4)
  - Spinal cord injury [Recovered/Resolved]
  - Syncope [Recovered/Resolved]
  - Hypokalaemia [Unknown]
  - Craniocerebral injury [Recovered/Resolved]

NARRATIVE: CASE EVENT DATE: 20230823
